FAERS Safety Report 22102855 (Version 1)
Quarter: 2023Q1

REPORT INFORMATION
  Report Type: Spontaneous
  Country: GB (occurrence: GB)
  Receive Date: 20230316
  Receipt Date: 20230316
  Transmission Date: 20230418
  Serious: Yes (Disabling, Other)
  Sender: FDA-Public Use
  Company Number: GB-MHRA-MED-202303060714249590-NSCGY

PATIENT
  Sex: Female

DRUGS (1)
  1. CYMBALTA [Suspect]
     Active Substance: DULOXETINE HYDROCHLORIDE
     Indication: Depression
     Dosage: UNK, UNKNOWN
     Route: 065

REACTIONS (4)
  - Sinus headache [Not Recovered/Not Resolved]
  - Seizure [Not Recovered/Not Resolved]
  - Tension headache [Not Recovered/Not Resolved]
  - Paraesthesia [Not Recovered/Not Resolved]
